FAERS Safety Report 4958259-8 (Version None)
Quarter: 2006Q1

REPORT INFORMATION
  Report Type: 
  Country: None (occurrence: None)
  Receive Date: 20060330
  Receipt Date: 20060323
  Transmission Date: 20060701
  Serious: Yes (Other)
  Sender: FDA-Public Use
  Company Number: US-BRISTOL-MYERS SQUIBB COMPANY-13326210

PATIENT

DRUGS (6)
  1. ATAZANAVIR [Suspect]
     Indication: HIV INFECTION
  2. VIDEX EC [Interacting]
     Indication: HIV INFECTION
  3. VIREAD [Interacting]
     Indication: HIV INFECTION
  4. RITONAVIR [Interacting]
     Indication: HIV INFECTION
  5. BUPRENORPHINE HCL [Interacting]
  6. OLANZAPINE [Interacting]

REACTIONS (2)
  - DRUG INTERACTION [None]
  - SEDATION [None]
